FAERS Safety Report 8395515-8 (Version None)
Quarter: 2012Q2

REPORT INFORMATION
  Report Type: 
  Country: None (occurrence: None)
  Receive Date: 20120530
  Receipt Date: 20110531
  Transmission Date: 20120825
  Serious: No
  Sender: FDA-Public Use
  Company Number: US-GLAXOSMITHKLINE-A0929694A

PATIENT
  Age: 72 Year
  Sex: Female

DRUGS (4)
  1. NEXIUM [Concomitant]
  2. ALLEGRA [Concomitant]
  3. VENTOLIN [Suspect]
     Indication: ASTHMA
     Route: 055
  4. DIOVAN HCT [Concomitant]

REACTIONS (5)
  - DYSPNOEA [None]
  - NONSPECIFIC REACTION [None]
  - PRODUCTIVE COUGH [None]
  - ILL-DEFINED DISORDER [None]
  - INFECTION [None]
